FAERS Safety Report 9743195 (Version 1)
Quarter: 2013Q4

REPORT INFORMATION
  Report Type: Spontaneous
  Country: US (occurrence: US)
  Receive Date: 20131210
  Receipt Date: 20131210
  Transmission Date: 20140711
  Serious: No
  Sender: FDA-Public Use
  Company Number: US-GILEAD-2009-0024966

PATIENT
  Sex: Female
  Weight: 63.05 kg

DRUGS (8)
  1. LETAIRIS [Suspect]
     Indication: PULMONARY ARTERIAL HYPERTENSION
     Route: 048
     Dates: start: 20090918
  2. LASIX [Concomitant]
  3. ZOLOFT [Concomitant]
  4. ASACOL [Concomitant]
  5. LEVOTHROID [Concomitant]
  6. BALZIVA [Concomitant]
  7. SPIRIVA [Concomitant]
  8. FERROUS SULFATE [Concomitant]

REACTIONS (1)
  - Constipation [Unknown]
